FAERS Safety Report 23932084 (Version 1)
Quarter: 2024Q2

REPORT INFORMATION
  Report Type: Spontaneous
  Country: FR (occurrence: FR)
  Receive Date: 20240603
  Receipt Date: 20240603
  Transmission Date: 20240715
  Serious: Yes (Hospitalization)
  Sender: FDA-Public Use
  Company Number: None

PATIENT
  Age: 45 Year
  Sex: Female
  Weight: 95 kg

DRUGS (10)
  1. CISATRACURIUM BESYLATE [Suspect]
     Active Substance: CISATRACURIUM BESYLATE
     Indication: Sedation
     Dates: start: 20240227, end: 20240307
  2. MIDAZOLAM [Suspect]
     Active Substance: MIDAZOLAM
     Indication: Sedation
     Dates: start: 20240227, end: 20240307
  3. VANCOMYCIN [Suspect]
     Active Substance: VANCOMYCIN
     Indication: Peritonitis
     Dates: start: 20240228, end: 20240301
  4. ENOXAPARIN [Suspect]
     Active Substance: ENOXAPARIN
     Indication: Cardiovascular event prophylaxis
     Dates: start: 20240228, end: 20240307
  5. SUFENTANIL [Suspect]
     Active Substance: SUFENTANIL
     Indication: Sedation
     Dates: start: 20240227, end: 20240307
  6. HYDROCORTISONE [Suspect]
     Active Substance: HYDROCORTISONE
     Indication: Product used for unknown indication
     Dates: start: 20240228, end: 20240305
  7. NOREPINEPHRINE [Suspect]
     Active Substance: NOREPINEPHRINE\NOREPINEPHRINE BITARTRATE
     Indication: Hypotension
     Dates: start: 20240227, end: 20240229
  8. PIPERACILLIN AND TAZOBACTAM [Suspect]
     Active Substance: PIPERACILLIN SODIUM\TAZOBACTAM SODIUM
     Indication: Peritonitis
     Dosage: STRENGTH: 4 G/500 MG
     Dates: start: 20240228, end: 20240306
  9. CASPOFUNGIN [Suspect]
     Active Substance: CASPOFUNGIN
     Indication: Peritonitis
     Dates: start: 20240228, end: 20240306
  10. GENTAMICIN [Suspect]
     Active Substance: GENTAMICIN
     Indication: Peritonitis
     Dates: start: 20240228, end: 20240228

REACTIONS (1)
  - Acute kidney injury [Recovered/Resolved with Sequelae]

NARRATIVE: CASE EVENT DATE: 20240229
